FAERS Safety Report 6286141-5 (Version None)
Quarter: 2009Q3

REPORT INFORMATION
  Report Type: 
  Country: None (occurrence: None)
  Receive Date: 20090728
  Receipt Date: 20090715
  Transmission Date: 20100115
  Serious: Yes (Hospitalization)
  Sender: FDA-Public Use
  Company Number: DE-ROCHE-645686

PATIENT
  Sex: Female
  Weight: 75 kg

DRUGS (2)
  1. XELODA [Suspect]
     Route: 048
     Dates: start: 20090616, end: 20090628
  2. AVASTIN [Concomitant]
     Route: 042
     Dates: start: 20090616

REACTIONS (3)
  - APHTHOUS STOMATITIS [None]
  - PALMAR-PLANTAR ERYTHRODYSAESTHESIA SYNDROME [None]
  - SKIN HYPERPIGMENTATION [None]
